FAERS Safety Report 9657775 (Version 2)
Quarter: 2013Q4

REPORT INFORMATION
  Report Type: Spontaneous
  Country: HU (occurrence: HU)
  Receive Date: 20131030
  Receipt Date: 20131121
  Transmission Date: 20140711
  Serious: Yes (Other)
  Sender: FDA-Public Use
  Company Number: HU-TEVA-439709ISR

PATIENT
  Age: 62 Year
  Sex: Male
  Weight: 98 kg

DRUGS (5)
  1. GLICLAZIDE [Suspect]
     Indication: TYPE 2 DIABETES MELLITUS
     Dosage: 60 MILLIGRAM DAILY;
     Route: 048
     Dates: start: 2010, end: 2013
  2. GLICLAZIDE [Suspect]
     Dosage: 30 MILLIGRAM DAILY;
     Route: 048
     Dates: start: 2013, end: 2013
  3. METFORMIN [Suspect]
     Indication: TYPE 2 DIABETES MELLITUS
     Dosage: 3000 MILLIGRAM DAILY;
     Dates: start: 2009, end: 2009
  4. METFORMIN [Suspect]
     Dosage: 500 MILLIGRAM DAILY;
     Dates: start: 2013, end: 2013
  5. METFORMIN [Suspect]
     Dosage: 1000 MILLIGRAM DAILY;
     Dates: start: 2013

REACTIONS (4)
  - Angina pectoris [Recovered/Resolved]
  - Hypoglycaemia [Recovered/Resolved]
  - Abdominal discomfort [Recovered/Resolved]
  - Diarrhoea [Recovered/Resolved]
